FAERS Safety Report 17425568 (Version 1)
Quarter: 2020Q1

REPORT INFORMATION
  Report Type: Spontaneous
  Country: CN (occurrence: CN)
  Receive Date: 20200218
  Receipt Date: 20200218
  Transmission Date: 20200409
  Serious: Yes (Hospitalization, Other)
  Sender: FDA-Public Use
  Company Number: CN-JNJFOC-20200222489

PATIENT
  Age: 80 Year
  Sex: Female

DRUGS (6)
  1. CETIRIZINE HYDROCHLORIDE. [Suspect]
     Active Substance: CETIRIZINE HYDROCHLORIDE
     Indication: OFF LABEL USE
  2. AMLODIPINE [Concomitant]
     Active Substance: AMLODIPINE BESYLATE
     Indication: PRODUCT USED FOR UNKNOWN INDICATION
     Dosage: 5 MILLIGRAM, ONCE DAILY (QD)
     Route: 065
  3. CETIRIZINE HYDROCHLORIDE. [Suspect]
     Active Substance: CETIRIZINE HYDROCHLORIDE
     Indication: ECZEMA
     Dosage: UNKNOWN DOSE?OFF LABEL USE FOR INDICATION
     Route: 065
  4. METHYLPREDNISOLONE. [Suspect]
     Active Substance: METHYLPREDNISOLONE
     Indication: PRODUCT USED FOR UNKNOWN INDICATION
     Dosage: 40 MILLIGRAM, ONCE DAILY (QD)
     Route: 065
  5. ALLOPURINOL. [Suspect]
     Active Substance: ALLOPURINOL
     Indication: PAIN IN EXTREMITY
     Dosage: 250 MILLIGRAM, ONCE DAILY (QD)
     Route: 048
     Dates: start: 20181019
  6. METHYLPREDNISOLONE. [Suspect]
     Active Substance: METHYLPREDNISOLONE
     Indication: ECZEMA
     Dosage: UNKNOWN DOSE
     Route: 065

REACTIONS (25)
  - Skin exfoliation [Recovered/Resolved]
  - Gastrointestinal haemorrhage [Recovered/Resolved]
  - Drug eruption [Unknown]
  - Skin reaction [Recovered/Resolved]
  - Scab [Recovered/Resolved]
  - Electrolyte imbalance [Recovered/Resolved]
  - Face oedema [Recovered/Resolved]
  - Hyperkalaemia [Recovered/Resolved]
  - Rash [Unknown]
  - Chronic kidney disease [Unknown]
  - Eczema [Unknown]
  - Pruritus [Recovered/Resolved]
  - Hepatic function abnormal [Recovered/Resolved]
  - Erythema [Recovered/Resolved]
  - Thrombocytopenia [Recovered/Resolved]
  - Mouth ulceration [Recovered/Resolved]
  - Leukocytosis [Recovered/Resolved]
  - Neutrophilia [Recovered/Resolved]
  - Off label use [Unknown]
  - Oedema peripheral [Recovered/Resolved]
  - Skin lesion [Recovered/Resolved]
  - Drug ineffective for unapproved indication [Unknown]
  - Rash erythematous [Recovered/Resolved]
  - Anaemia [Recovered/Resolved]
  - Inflammation [Recovered/Resolved]

NARRATIVE: CASE EVENT DATE: 20181215
